FAERS Safety Report 21074643 (Version 1)
Quarter: 2022Q3

REPORT INFORMATION
  Report Type: Report from Study
  Country: CA (occurrence: CA)
  Receive Date: 20220713
  Receipt Date: 20220713
  Transmission Date: 20221027
  Serious: Yes (Other)
  Sender: FDA-Public Use
  Company Number: CA-NOVARTISPH-NVSC2022CA007219

PATIENT
  Age: 55 Year
  Sex: Female

DRUGS (2)
  1. TAFINLAR [Suspect]
     Active Substance: DABRAFENIB MESYLATE
     Indication: Malignant melanoma
     Dosage: UNK
     Route: 048
     Dates: start: 20220106
  2. MEKINIST [Suspect]
     Active Substance: TRAMETINIB DIMETHYL SULFOXIDE
     Indication: Malignant melanoma
     Dosage: UNK
     Route: 048
     Dates: start: 20220106

REACTIONS (18)
  - Pneumonia [Unknown]
  - Dyspepsia [Unknown]
  - Vomiting [Unknown]
  - Abdominal pain upper [Unknown]
  - Feeling abnormal [Unknown]
  - Haemoptysis [Not Recovered/Not Resolved]
  - Lung disorder [Unknown]
  - Back pain [Unknown]
  - Dry skin [Unknown]
  - Dry mouth [Unknown]
  - Lymphoedema [Unknown]
  - Pyrexia [Unknown]
  - Chills [Unknown]
  - Myalgia [Unknown]
  - Urinary tract infection [Unknown]
  - Product packaging issue [Unknown]
  - Product storage error [Unknown]
  - Drug ineffective [Unknown]

NARRATIVE: CASE EVENT DATE: 20220107
